FAERS Safety Report 5636640-1 (Version None)
Quarter: 2008Q1

REPORT INFORMATION
  Report Type: 
  Country: None (occurrence: None)
  Receive Date: 20080219
  Receipt Date: 20080206
  Transmission Date: 20080703
  Serious: Yes (Hospitalization)
  Sender: FDA-Public Use
  Company Number: 2008-00693

PATIENT
  Age: 58 Year
  Sex: Female

DRUGS (7)
  1. FIORICET [Suspect]
     Indication: OSTEOARTHRITIS
     Dosage: 650 MG, DAILY, 4DAYS/WK, ORAL
     Route: 048
  2. PAROXETINE [Suspect]
     Indication: DRUG USE FOR UNKNOWN INDICATION
     Dosage: X 8 MONTHS, ORAL
     Route: 048
  3. ALCOHOL(ETHANOL) [Suspect]
     Indication: ALCOHOL USE
     Dosage: LESS THAN 10 G, DAILY, ORAL
     Route: 048
  4. LORAZEPAM [Concomitant]
  5. ATENOLOL [Concomitant]
  6. HYDROXYZINE [Concomitant]
  7. VALERIANA DISPERT (VALERIANA OFFICINALIS ROOT) [Concomitant]

REACTIONS (3)
  - DRUG INTERACTION [None]
  - HEPATOTOXICITY [None]
  - LIVER INJURY [None]
